FAERS Safety Report 20990301 (Version 1)
Quarter: 2022Q2

REPORT INFORMATION
  Report Type: Spontaneous
  Country: FR (occurrence: FR)
  Receive Date: 20220622
  Receipt Date: 20220622
  Transmission Date: 20220721
  Serious: Yes (Other)
  Sender: FDA-Public Use
  Company Number: FR-AFSSAPS-DJ20221276

PATIENT
  Age: 87 Year
  Sex: Female
  Weight: 65.4 kg

DRUGS (5)
  1. AMOXICILLIN [Suspect]
     Active Substance: AMOXICILLIN
     Indication: Helicobacter infection
     Dosage: 2 GRAM, ONCE A DAY
     Route: 048
     Dates: start: 20220512, end: 20220526
  2. CLARITHROMYCIN [Suspect]
     Active Substance: CLARITHROMYCIN
     Indication: Helicobacter infection
     Dosage: 1 GRAM, ONCE A DAY
     Route: 048
     Dates: start: 20220512, end: 20220526
  3. METRONIDAZOLE [Suspect]
     Active Substance: METRONIDAZOLE
     Indication: Helicobacter infection
     Dosage: 1 GRAM, ONCE A DAY
     Route: 048
     Dates: start: 20220512, end: 20220526
  4. OPDIVO [Suspect]
     Active Substance: NIVOLUMAB
     Indication: Vaginal cancer
     Dosage: 240 MILLIGRAM, CYCLICAL (C1)
     Route: 041
     Dates: start: 20220502
  5. YERVOY [Suspect]
     Active Substance: IPILIMUMAB
     Indication: Vaginal cancer
     Dosage: 100 MILLIGRAM, CYCLICAL (C1)
     Route: 041
     Dates: start: 20220502

REACTIONS (2)
  - Herpes virus infection [Recovering/Resolving]
  - Oral fungal infection [Recovering/Resolving]

NARRATIVE: CASE EVENT DATE: 20220517
